FAERS Safety Report 19822379 (Version 2)
Quarter: 2021Q4

REPORT INFORMATION
  Report Type: Spontaneous
  Country: US (occurrence: US)
  Receive Date: 20210913
  Receipt Date: 20211012
  Transmission Date: 20220303
  Serious: Yes (Hospitalization)
  Sender: FDA-Public Use
  Company Number: US-GLOBAL BLOOD THERAPEUTICS INC-US-GBT-21-02399

PATIENT
  Age: 36 Year
  Sex: Female

DRUGS (3)
  1. OXBRYTA [Suspect]
     Active Substance: VOXELOTOR
     Indication: Product used for unknown indication
     Dates: start: 20210124, end: 2021
  2. OXBRYTA [Suspect]
     Active Substance: VOXELOTOR
     Dates: start: 2021, end: 202108
  3. TRANSFUSION [Concomitant]
     Indication: Product used for unknown indication
     Dosage: NOT PROVIDED

REACTIONS (14)
  - Delayed haemolytic transfusion reaction [Recovered/Resolved]
  - Salmonella bacteraemia [Recovered/Resolved]
  - Hypoglycaemia [Unknown]
  - Flatulence [Unknown]
  - Abdominal distension [Recovering/Resolving]
  - Weight decreased [Recovered/Resolved]
  - Syncope [Recovered/Resolved]
  - Nervousness [Recovered/Resolved]
  - Hyperhidrosis [Recovered/Resolved]
  - Dehydration [Recovered/Resolved]
  - Abdominal pain upper [Unknown]
  - Diarrhoea [Recovered/Resolved]
  - Product dose omission issue [Unknown]
  - Off label use [Unknown]

NARRATIVE: CASE EVENT DATE: 20210101
